FAERS Safety Report 9556350 (Version 1)
Quarter: 2013Q3

REPORT INFORMATION
  Report Type: Report from Study
  Country: US (occurrence: US)
  Receive Date: 20130926
  Receipt Date: 20130926
  Transmission Date: 20140515
  Serious: No
  Sender: FDA-Public Use
  Company Number: US-JNJFOC-20130910796

PATIENT
  Age: 53 Year
  Sex: Male
  Weight: 92.99 kg

DRUGS (5)
  1. STELARA [Suspect]
     Indication: PSORIASIS
     Route: 058
     Dates: start: 201210
  2. VALIUM [Concomitant]
     Indication: FEELING OF RELAXATION
     Route: 048
  3. CYMBALTA [Concomitant]
     Indication: ARTHRITIS
     Route: 048
  4. LISINOPRIL [Concomitant]
     Indication: BLOOD PRESSURE
     Route: 048
  5. UNKNOWN MEDICATION [Concomitant]
     Indication: MULTIPLE ALLERGIES
     Route: 065

REACTIONS (2)
  - Prostatic specific antigen increased [Not Recovered/Not Resolved]
  - Haematuria [Unknown]
